FAERS Safety Report 6655525-5 (Version None)
Quarter: 2010Q1

REPORT INFORMATION
  Report Type: 
  Country: None (occurrence: None)
  Receive Date: 20100329
  Receipt Date: 20100319
  Transmission Date: 20100710
  Serious: Yes (Other)
  Sender: FDA-Public Use
  Company Number: BR-PFIZER INC-2010035743

PATIENT
  Sex: Female

DRUGS (2)
  1. NORVASC [Suspect]
     Route: 048
  2. OLMESARTAN MEDOXOMIL [Suspect]
     Route: 048

REACTIONS (2)
  - FALL [None]
  - PAIN IN EXTREMITY [None]
